FAERS Safety Report 7931121-4 (Version None)
Quarter: 2011Q4

REPORT INFORMATION
  Report Type: 
  Country: None (occurrence: None)
  Receive Date: 20111121
  Receipt Date: 20111115
  Transmission Date: 20120403
  Serious: Yes (Hospitalization)
  Sender: FDA-Public Use
  Company Number: EC-JNJFOC-20110810566

PATIENT
  Age: 63 Year
  Sex: Female

DRUGS (3)
  1. GOLIMUMAB [Suspect]
     Indication: RHEUMATOID ARTHRITIS
     Route: 058
     Dates: start: 20101108
  2. TIBOLONE [Concomitant]
     Indication: MENOPAUSE
     Route: 048
     Dates: start: 20071001
  3. LOSARTAN [Concomitant]
     Indication: HYPERTENSION
     Route: 048
     Dates: start: 20091101

REACTIONS (5)
  - URINARY TRACT INFECTION [None]
  - DEHYDRATION [None]
  - RENAL FAILURE ACUTE [None]
  - GASTROENTERITIS BACTERIAL [None]
  - INTESTINAL PERFORATION [None]
